FAERS Safety Report 8772550 (Version 1)
Quarter: 2012Q4

REPORT INFORMATION
  Report Type: 
  Country: US (occurrence: US)
  Receive Date: 20120905
  Receipt Date: 20120905
  Transmission Date: 20130627
  Serious: Yes (Other)
  Sender: FDA-Public Use
  Company Number: US-PFIZER INC-2012214232

PATIENT
  Age: 44 Year
  Sex: Female
  Weight: 62.2 kg

DRUGS (4)
  1. SUNITINIB MALATE [Suspect]
     Indication: MALIGNANT MELANOMA
     Dosage: 37.5 mg, daily on days 1-28
     Route: 048
     Dates: start: 20110414, end: 20110623
  2. BEVACIZUMAB [Suspect]
     Indication: MALIGNANT MELANOMA
     Dosage: 5 mg/kg, over 90-30 min on days 1,15 and 29
     Route: 042
     Dates: start: 20110414, end: 20110609
  3. VICODIN [Concomitant]
     Dosage: 5-500 mg tablet
     Route: 048
  4. TELMISARTAN [Concomitant]
     Dosage: 40 mg, tablet
     Route: 048

REACTIONS (1)
  - Wound complication [Recovered/Resolved with Sequelae]
